FAERS Safety Report 12824139 (Version 2)
Quarter: 2016Q4

REPORT INFORMATION
  Report Type: Spontaneous
  Country: BR (occurrence: BR)
  Receive Date: 20161007
  Receipt Date: 20161017
  Transmission Date: 20170207
  Serious: Yes (Hospitalization)
  Sender: FDA-Public Use
  Company Number: BR-SA-2016SA183591

PATIENT
  Sex: Male

DRUGS (2)
  1. OXALIPLATIN. [Suspect]
     Active Substance: OXALIPLATIN
     Indication: ADENOCARCINOMA OF COLON
     Route: 033
     Dates: start: 20151005
  2. OXALIPLATIN. [Suspect]
     Active Substance: OXALIPLATIN
     Indication: CYTOREDUCTIVE SURGERY
     Route: 033
     Dates: start: 20151005

REACTIONS (6)
  - Scrotal pain [Recovering/Resolving]
  - Pyrexia [Unknown]
  - Noninfective epididymitis [Recovering/Resolving]
  - Scrotal swelling [Recovering/Resolving]
  - Scrotal disorder [Recovering/Resolving]
  - Off label use [Unknown]

NARRATIVE: CASE EVENT DATE: 201510
